FAERS Safety Report 8053908-2 (Version None)
Quarter: 2012Q1

REPORT INFORMATION
  Report Type: 
  Country: None (occurrence: None)
  Receive Date: 20120118
  Receipt Date: 20120113
  Transmission Date: 20120608
  Serious: Yes (Death, Other)
  Sender: FDA-Public Use
  Company Number: US-ELI_LILLY_AND_COMPANY-US201201004364

PATIENT
  Sex: Male

DRUGS (2)
  1. ELOXATIN [Concomitant]
     Indication: HEAD AND NECK CANCER
     Dosage: UNK
     Dates: start: 20110601
  2. GEMZAR [Suspect]
     Indication: HEAD AND NECK CANCER
     Dosage: 2 G, WEEKLY (1/W)
     Dates: start: 20110128, end: 20110407

REACTIONS (5)
  - DRUG INEFFECTIVE [None]
  - OFF LABEL USE [None]
  - NEOPLASM PROGRESSION [None]
  - HOSPICE CARE [None]
  - DEATH [None]
